FAERS Safety Report 18756143 (Version 1)
Quarter: 2021Q1

REPORT INFORMATION
  Report Type: Spontaneous
  Country: US (occurrence: US)
  Receive Date: 20210119
  Receipt Date: 20210119
  Transmission Date: 20210419
  Serious: Yes (Other)
  Sender: FDA-Public Use
  Company Number: US-BAYER-2021-020722

PATIENT
  Age: 70 Year
  Sex: Female
  Weight: 85.26 kg

DRUGS (6)
  1. TRIAMCINOLONE [Concomitant]
     Active Substance: TRIAMCINOLONE
  2. HCTZ [Concomitant]
     Active Substance: HYDROCHLOROTHIAZIDE
  3. LISINOPRIL. [Concomitant]
     Active Substance: LISINOPRIL
  4. ALEVE [Suspect]
     Active Substance: NAPROXEN SODIUM
  5. SYNTHROID [Concomitant]
     Active Substance: LEVOTHYROXINE SODIUM
  6. IMBRUVICA [Suspect]
     Active Substance: IBRUTINIB

REACTIONS (30)
  - Vomiting [Unknown]
  - Pyrexia [Unknown]
  - Lung disorder [Unknown]
  - COVID-19 [Unknown]
  - Urosepsis [Unknown]
  - Renal impairment [Unknown]
  - Depression [Unknown]
  - Memory impairment [Unknown]
  - Pruritus [Unknown]
  - Upper respiratory tract infection [Unknown]
  - Eye irritation [Unknown]
  - Lymphadenopathy [Unknown]
  - Haematoma [Unknown]
  - Rash [Unknown]
  - Fatigue [Unknown]
  - Muscle spasms [Unknown]
  - Hypertensive crisis [Unknown]
  - Headache [Unknown]
  - Tremor [Unknown]
  - Asthenia [Unknown]
  - Diarrhoea [Unknown]
  - Cough [Unknown]
  - Weight decreased [Unknown]
  - Hepatitis B [Unknown]
  - Urinary tract infection [Unknown]
  - Decreased appetite [Unknown]
  - Increased tendency to bruise [Unknown]
  - Nausea [Unknown]
  - Chills [Unknown]
  - Vocal cord polyp [Unknown]

NARRATIVE: CASE EVENT DATE: 201607
